FAERS Safety Report 7477411-3 (Version None)
Quarter: 2011Q2

REPORT INFORMATION
  Report Type: 
  Country: None (occurrence: None)
  Receive Date: 20110513
  Receipt Date: 20110504
  Transmission Date: 20111010
  Serious: No
  Sender: FDA-Public Use
  Company Number: US-BIOGENIDEC-2011BI017075

PATIENT
  Age: 33 Year
  Sex: Female

DRUGS (2)
  1. TYSABRI [Suspect]
     Indication: MULTIPLE SCLEROSIS
     Route: 042
     Dates: start: 20110124
  2. BENADRYL [Concomitant]
     Indication: PREMEDICATION

REACTIONS (3)
  - HEADACHE [None]
  - SLUGGISHNESS [None]
  - HYPERSENSITIVITY [None]
